FAERS Safety Report 23218010 (Version 1)
Quarter: 2023Q4

REPORT INFORMATION
  Report Type: Spontaneous
  Country: CA (occurrence: CA)
  Receive Date: 20231122
  Receipt Date: 20231122
  Transmission Date: 20240110
  Serious: Yes (Other)
  Sender: FDA-Public Use
  Company Number: CA-VIIV HEALTHCARE LIMITED-CA2023040386

PATIENT
  Age: 46 Year
  Sex: Male

DRUGS (4)
  1. RILPIVIRINE [Suspect]
     Active Substance: RILPIVIRINE
     Indication: HIV infection
     Dosage: UNK, Z, EVERY MONTH 400MG/2ML CABOTEGRAVIR, 600MG/3ML RILPIVIRINE
     Route: 030
     Dates: start: 20220916
  2. RILPIVIRINE [Suspect]
     Active Substance: RILPIVIRINE
     Dosage: UNK, Z, EVERY MONTH 400MG/2ML CABOTEGRAVIR, 600MG/3ML RILPIVIRINE
     Route: 030
     Dates: start: 20220916
  3. CABOTEGRAVIR [Suspect]
     Active Substance: CABOTEGRAVIR
     Indication: HIV infection
     Dosage: UNK, Z, EVERY MONTH 400MG/2ML CABOTEGRAVIR, 600MG/3ML RILPIVIRINE
     Route: 030
     Dates: start: 20220916
  4. CABOTEGRAVIR [Suspect]
     Active Substance: CABOTEGRAVIR
     Dosage: UNK, Z, EVERY MONTH 400MG/2ML CABOTEGRAVIR, 600MG/3ML RILPIVIRINE
     Route: 030
     Dates: start: 20220916

REACTIONS (2)
  - Metabolic surgery [Unknown]
  - Weight decreased [Unknown]

NARRATIVE: CASE EVENT DATE: 20230309
